FAERS Safety Report 25181628 (Version 2)
Quarter: 2025Q2

REPORT INFORMATION
  Report Type: Report from Study
  Country: JP (occurrence: JP)
  Receive Date: 20250410
  Receipt Date: 20250611
  Transmission Date: 20250716
  Serious: Yes (Other)
  Sender: CSL BEHRING
  Company Number: JP-BEH-2025200961

PATIENT
  Age: 48 Year
  Sex: Female
  Weight: 55 kg

DRUGS (9)
  1. BERINERT [Suspect]
     Active Substance: HUMAN C1-ESTERASE INHIBITOR
     Indication: Hereditary angioedema
     Dosage: 6.6 ML, BIW
     Route: 058
     Dates: start: 20240725
  2. BERINERT [Suspect]
     Active Substance: HUMAN C1-ESTERASE INHIBITOR
     Indication: Prophylaxis
  3. ICATIBANT ACETATE [Concomitant]
     Active Substance: ICATIBANT ACETATE
     Indication: Hereditary angioedema
     Route: 065
     Dates: start: 20240801, end: 20240801
  4. ICATIBANT ACETATE [Concomitant]
     Active Substance: ICATIBANT ACETATE
     Indication: Prophylaxis
     Route: 065
     Dates: start: 20240902, end: 20240902
  5. ICATIBANT ACETATE [Concomitant]
     Active Substance: ICATIBANT ACETATE
     Indication: Hereditary angioedema
     Route: 065
     Dates: start: 20240925, end: 20240925
  6. ICATIBANT ACETATE [Concomitant]
     Active Substance: ICATIBANT ACETATE
     Route: 058
  7. ICATIBANT ACETATE [Concomitant]
     Active Substance: ICATIBANT ACETATE
     Route: 058
  8. ICATIBANT ACETATE [Concomitant]
     Active Substance: ICATIBANT ACETATE
     Route: 058
  9. ICATIBANT ACETATE [Concomitant]
     Active Substance: ICATIBANT ACETATE
     Route: 058

REACTIONS (3)
  - Hereditary angioedema [Recovered/Resolved]
  - Hereditary angioedema [Recovered/Resolved]
  - Hereditary angioedema [Recovered/Resolved]

NARRATIVE: CASE EVENT DATE: 20240801
